FAERS Safety Report 16360802 (Version 2)
Quarter: 2019Q3

REPORT INFORMATION
  Report Type: Spontaneous
  Country: PT (occurrence: PT)
  Receive Date: 20190528
  Receipt Date: 20190704
  Transmission Date: 20191004
  Serious: Yes (Death, Life-Threatening, Other)
  Sender: FDA-Public Use
  Company Number: PT-AUROBINDO-AUR-APL-2019-028333

PATIENT

DRUGS (7)
  1. BEVACIZUMAB. [Suspect]
     Active Substance: BEVACIZUMAB
     Indication: ADENOCARCINOMA OF COLON
     Dosage: UNK, 4 CYCLES, EVERY-2 WEEKS
     Route: 042
     Dates: start: 20180626, end: 20180821
  2. OXALIPLATIN. [Suspect]
     Active Substance: OXALIPLATIN
     Indication: ADENOCARCINOMA OF COLON
     Dosage: UNK, 4 CYCLES, EVERY-2 WEEKS
     Route: 042
  3. FOLINIC ACID [Suspect]
     Active Substance: LEUCOVORIN
     Indication: ADENOCARCINOMA OF COLON
     Dosage: UNK, 4 CYCLES EVERY TWO WEEKS
     Route: 042
  4. CALCIUM FOLINATE [Concomitant]
     Active Substance: LEUCOVORIN CALCIUM
     Indication: ADENOCARCINOMA OF COLON
     Dosage: EVERY-2 WEEKS,4 CYCLE
     Route: 042
     Dates: start: 20180626, end: 20180821
  5. FLUOROURACIL. [Suspect]
     Active Substance: FLUOROURACIL
     Indication: ADENOCARCINOMA OF COLON
     Dosage: UNK, 4 CYCLES, EVERY-2 WEEKS
     Route: 042
  6. OXALIPLATIN. [Suspect]
     Active Substance: OXALIPLATIN
     Dosage: EVERY-2 WEEKS ,4 CYCLE
     Route: 042
     Dates: start: 20180626, end: 20180821
  7. FLUOROURACIL. [Suspect]
     Active Substance: FLUOROURACIL
     Dosage: 2400 MILLIGRAM/SQ. METER,4 CYCLE
     Route: 042
     Dates: start: 20180626, end: 20180823

REACTIONS (4)
  - Myelopathy [Fatal]
  - Toxicity to various agents [Fatal]
  - Device dislocation [Fatal]
  - Vomiting [Fatal]

NARRATIVE: CASE EVENT DATE: 2018
